FAERS Safety Report 20203478 (Version 1)
Quarter: 2021Q4

REPORT INFORMATION
  Report Type: Spontaneous
  Country: FR (occurrence: FR)
  Receive Date: 20211219
  Receipt Date: 20211219
  Transmission Date: 20220303
  Serious: Yes (Other)
  Sender: FDA-Public Use
  Company Number: FR-GRUNENTHAL-2021-272447

PATIENT
  Age: 8 Year
  Sex: Male

DRUGS (1)
  1. TRAMADOL HYDROCHLORIDE [Suspect]
     Active Substance: TRAMADOL HYDROCHLORIDE
     Indication: Product used for unknown indication
     Dosage: 152 DROP
     Route: 048

REACTIONS (4)
  - Respiratory distress [Unknown]
  - Overdose [Unknown]
  - Prescription drug used without a prescription [Unknown]
  - Drug monitoring procedure not performed [Unknown]
